FAERS Safety Report 12128427 (Version 1)
Quarter: 2016Q1

REPORT INFORMATION
  Report Type: Spontaneous
  Country: US (occurrence: US)
  Receive Date: 20160229
  Receipt Date: 20160229
  Transmission Date: 20160526
  Serious: No
  Sender: FDA-Public Use
  Company Number: US-ACORDA-ACO_119100_2015

PATIENT
  Age: 39 Year
  Sex: Male

DRUGS (1)
  1. AMPYRA [Suspect]
     Active Substance: DALFAMPRIDINE
     Indication: PRODUCT USED FOR UNKNOWN INDICATION

REACTIONS (5)
  - Condition aggravated [None]
  - Incontinence [Unknown]
  - Anal incontinence [Unknown]
  - Urge incontinence [Unknown]
  - Memory impairment [Unknown]

NARRATIVE: CASE EVENT DATE: 201510
